FAERS Safety Report 9365210 (Version 1)
Quarter: 2013Q2

REPORT INFORMATION
  Report Type: Other
  Country: US (occurrence: US)
  Receive Date: 20130624
  Receipt Date: 20130624
  Transmission Date: 20140414
  Serious: Yes (Other)
  Sender: FDA-Public Use
  Company Number: US-US-EMD SERONO, INC.-7217077

PATIENT
  Age: 36 Year
  Sex: Female

DRUGS (3)
  1. CLOMIPHENE CITRATE [Suspect]
     Indication: OVULATION INDUCTION
  2. CLOMIPHENE CITRATE [Suspect]
  3. CHORIOGONADOTROPIN ALFA [Concomitant]
     Indication: OVULATION INDUCTION

REACTIONS (4)
  - Vaginal haemorrhage [Recovered/Resolved]
  - Placenta accreta [Recovered/Resolved]
  - Normal newborn [Recovered/Resolved]
  - Maternal exposure during pregnancy [Recovered/Resolved]
